FAERS Safety Report 4701890-5 (Version None)
Quarter: 2005Q2

REPORT INFORMATION
  Report Type: 
  Country: None (occurrence: None)
  Receive Date: 20050627
  Receipt Date: 20050617
  Transmission Date: 20051028
  Serious: Yes (Other)
  Sender: FDA-Public Use
  Company Number: 2005090509

PATIENT
  Age: 36 Year
  Sex: Male
  Weight: 110.6777 kg

DRUGS (3)
  1. GEODON [Suspect]
     Indication: MOOD SWINGS
     Dosage: 20 MG (20 MG,1 IN 1 D),ORAL
     Route: 048
     Dates: start: 20050501, end: 20050613
  2. LIPITOR [Concomitant]
  3. PRILOSEC [Concomitant]

REACTIONS (4)
  - ASTHENIA [None]
  - DIZZINESS [None]
  - ELECTROCARDIOGRAM T WAVE ABNORMAL [None]
  - RASH GENERALISED [None]
